FAERS Safety Report 5679490-2 (Version None)
Quarter: 2008Q1

REPORT INFORMATION
  Report Type: 
  Country: None (occurrence: None)
  Receive Date: 20080325
  Receipt Date: 20080317
  Transmission Date: 20080703
  Serious: Yes (Other)
  Sender: FDA-Public Use
  Company Number: GB-PFIZER INC-2008022709

PATIENT
  Sex: Male
  Weight: 69 kg

DRUGS (2)
  1. CHAMPIX [Suspect]
     Indication: SMOKING CESSATION THERAPY
     Route: 048
     Dates: start: 20080110, end: 20080119
  2. CANNABIS [Concomitant]

REACTIONS (9)
  - CRYING [None]
  - DEPRESSION [None]
  - DYSPEPSIA [None]
  - ERECTILE DYSFUNCTION [None]
  - INSOMNIA [None]
  - NAUSEA [None]
  - PARANOIA [None]
  - RESTLESSNESS [None]
  - SELF ESTEEM DECREASED [None]
